FAERS Safety Report 10652897 (Version 1)
Quarter: 2014Q4

REPORT INFORMATION
  Report Type: Report from Study
  Country: JP (occurrence: JP)
  Receive Date: 20141215
  Receipt Date: 20141215
  Transmission Date: 20150529
  Serious: Yes (Other)
  Sender: FDA-Public Use
  Company Number: JP-MYLANLABS-2014M1013944

PATIENT

DRUGS (4)
  1. DEXAMETHASONE. [Suspect]
     Active Substance: DEXAMETHASONE
     Indication: PLASMA CELL MYELOMA
     Dosage: TWO TREATMENTS OF DEXAMETHASONE 40 MG/D WEEKLY FOR 4 OUT OF 4 WEEKS
     Route: 065
  2. LENALIDOMIDE [Suspect]
     Active Substance: LENALIDOMIDE
     Dosage: TWO TREATMENTS OF LENALIDOMIDE 10-25 MG/D FOR 3 OUT OF 4 WEEKS
     Route: 065
  3. LENALIDOMIDE [Suspect]
     Active Substance: LENALIDOMIDE
     Indication: PLASMA CELL MYELOMA
  4. LENALIDOMIDE [Suspect]
     Active Substance: LENALIDOMIDE
     Dosage: 22 TREATMENTS OF LENALIDOMIDE 5 MG/2D OR 5-10 MG/D FOR 3 OUT OF 4 WEEKS, OVER 6-24 MONTHS
     Route: 065

REACTIONS (3)
  - Neutropenia [Unknown]
  - Leukopenia [Unknown]
  - Neuropathy peripheral [Unknown]
